FAERS Safety Report 5491018-9 (Version None)
Quarter: 2007Q4

REPORT INFORMATION
  Report Type: 
  Country: None (occurrence: None)
  Receive Date: 20071019
  Receipt Date: 20071009
  Transmission Date: 20080405
  Serious: Yes (Other)
  Sender: FDA-Public Use
  Company Number: GB-PFIZER INC-2006144754

PATIENT
  Age: 31 Year
  Sex: Female

DRUGS (3)
  1. ALPRAZOLAM [Suspect]
     Indication: PANIC DISORDER
  2. SERTRALINE [Suspect]
     Indication: PANIC DISORDER
  3. PAROXETINE [Suspect]
     Indication: PANIC DISORDER
     Route: 048

REACTIONS (9)
  - AGITATION [None]
  - ALCOHOL POISONING [None]
  - DEPRESSION [None]
  - HOMICIDE [None]
  - INTENTIONAL OVERDOSE [None]
  - RESTLESSNESS [None]
  - SUICIDAL IDEATION [None]
  - SUICIDE ATTEMPT [None]
  - TENSION [None]
